FAERS Safety Report 24337134 (Version 1)
Quarter: 2024Q3

REPORT INFORMATION
  Report Type: Spontaneous
  Country: US (occurrence: US)
  Receive Date: 20240919
  Receipt Date: 20240919
  Transmission Date: 20241017
  Serious: No
  Sender: BRISTOL MYERS SQUIBB
  Company Number: US-BRISTOL-MYERS SQUIBB COMPANY-2024-148448

PATIENT
  Age: 70 Year
  Sex: Female
  Weight: 73.03 kg

DRUGS (1)
  1. REVLIMID [Suspect]
     Active Substance: LENALIDOMIDE
     Indication: Plasma cell myeloma
     Dosage: FREQ-ONCE DAILY EVERY OTHER DAY
     Route: 048

REACTIONS (5)
  - Light chain analysis decreased [Recovering/Resolving]
  - Nightmare [Unknown]
  - Insomnia [Unknown]
  - Diarrhoea [Unknown]
  - Off label use [Unknown]

NARRATIVE: CASE EVENT DATE: 20240801
